FAERS Safety Report 4867726-7 (Version None)
Quarter: 2005Q4

REPORT INFORMATION
  Report Type: 
  Country: None (occurrence: None)
  Receive Date: 20051222
  Receipt Date: 20020413
  Transmission Date: 20060501
  Serious: Yes (Death)
  Sender: FDA-Public Use
  Company Number: HQWYE992414DEC05

PATIENT
  Age: 68 Year
  Sex: Female

DRUGS (1)
  1. GEMTUZUMAB OZOGAMICIN (GEMTUZUMAB, OZOGAMICIN, INJECTION) [Suspect]
     Indication: ACUTE MYELOID LEUKAEMIA

REACTIONS (11)
  - ANAEMIA [None]
  - ATELECTASIS [None]
  - BACK PAIN [None]
  - BACTERIAL SEPSIS [None]
  - DISEASE PROGRESSION [None]
  - GRANULOCYTOPENIA [None]
  - HYPONATRAEMIA [None]
  - NEUTROPENIA [None]
  - OEDEMA PERIPHERAL [None]
  - THROMBOCYTOPENIA [None]
  - URINARY RETENTION [None]
